FAERS Safety Report 7821621-X (Version None)
Quarter: 2011Q4

REPORT INFORMATION
  Report Type: 
  Country: None (occurrence: None)
  Receive Date: 20111018
  Receipt Date: 20110825
  Transmission Date: 20120403
  Serious: No
  Sender: FDA-Public Use
  Company Number: US-ASTRAZENECA-2011SE43964

PATIENT
  Age: 63 Year
  Sex: Female

DRUGS (4)
  1. PRISTIQ [Concomitant]
     Route: 048
  2. LISINOPRIL [Concomitant]
     Route: 048
  3. SYMBICORT [Suspect]
     Indication: ASTHMA
     Dosage: 160 MCG DAILY
     Route: 055
  4. METOPROLOL SUCCINATE [Suspect]
     Indication: BLOOD PRESSURE ABNORMAL
     Route: 048
     Dates: start: 20110401

REACTIONS (2)
  - THROAT IRRITATION [None]
  - COUGH [None]
